FAERS Safety Report 9284057 (Version 1)
Quarter: 2013Q2

REPORT INFORMATION
  Report Type: Spontaneous
  Country: US (occurrence: US)
  Receive Date: 20130510
  Receipt Date: 20130510
  Transmission Date: 20140414
  Serious: No
  Sender: FDA-Public Use
  Company Number: US-009507513-1304USA017670

PATIENT
  Sex: Male

DRUGS (10)
  1. NASONEX [Suspect]
     Indication: NASAL CONGESTION
     Dosage: TWICE DAILY IN EACH NOSTRIL
     Route: 045
     Dates: start: 2008, end: 2012
  2. NASONEX [Suspect]
     Indication: SEASONAL ALLERGY
  3. NASONEX [Suspect]
     Indication: HYPERSENSITIVITY
  4. GLUCOPHAGE [Concomitant]
  5. CRESTOR [Concomitant]
  6. CARVEDILOL [Concomitant]
  7. LISINOPRIL [Concomitant]
  8. ASPIRIN [Concomitant]
  9. VITAMINS (UNSPECIFIED) [Concomitant]
     Dosage: UNK, QD
  10. SYNTHROID [Concomitant]

REACTIONS (1)
  - Cataract [Not Recovered/Not Resolved]
